FAERS Safety Report 7404888-1 (Version None)
Quarter: 2011Q2

REPORT INFORMATION
  Report Type: 
  Country: None (occurrence: None)
  Receive Date: 20110411
  Receipt Date: 20110330
  Transmission Date: 20111010
  Serious: Yes (Other)
  Sender: FDA-Public Use
  Company Number: US-JNJFOC-20110401142

PATIENT
  Sex: Male
  Weight: 99.79 kg

DRUGS (6)
  1. FENTANYL-100 [Suspect]
     Indication: ARTHRITIS
     Route: 062
  2. FENTANYL-100 [Suspect]
     Indication: SPINAL COLUMN STENOSIS
     Route: 062
  3. FENTANYL-100 [Suspect]
     Route: 062
  4. FENTANYL-100 [Suspect]
     Route: 062
  5. METHADONE [Concomitant]
     Indication: PAIN
     Route: 048
  6. OXYCODONE [Concomitant]
     Indication: PAIN
     Dosage: 10/325 MG
     Route: 048

REACTIONS (5)
  - HOT FLUSH [None]
  - FEELING COLD [None]
  - DYSPNOEA [None]
  - THERAPEUTIC RESPONSE DECREASED [None]
  - BLINDNESS [None]
